FAERS Safety Report 7536543-1 (Version None)
Quarter: 2011Q2

REPORT INFORMATION
  Report Type: 
  Country: None (occurrence: None)
  Receive Date: 20110608
  Receipt Date: 20110608
  Transmission Date: 20111010
  Serious: Yes (Hospitalization)
  Sender: FDA-Public Use
  Company Number: None

PATIENT
  Sex: Male
  Weight: 66 kg

DRUGS (7)
  1. VINCRISTINE SULFATE [Suspect]
     Dosage: 2 MG
  2. CYCLOPHOSPHAMIDE [Suspect]
     Dosage: 2275 MG
  3. DOXORUBICIN HYDROCHLORIDE [Suspect]
     Dosage: 64 MG
  4. PREDNISONE [Suspect]
     Dosage: 75 MG
  5. BLEOMYCIN SULFATE [Suspect]
     Dosage: 18.2 UNIT
  6. ETOPOSIDE [Suspect]
     Dosage: 1095 MG
  7. PROCARBAZINE HYDROCHLORIDE [Suspect]
     Dosage: 200 MG

REACTIONS (2)
  - NEUTROPHIL COUNT DECREASED [None]
  - WHITE BLOOD CELL COUNT DECREASED [None]
